FAERS Safety Report 8052796-8 (Version None)
Quarter: 2012Q1

REPORT INFORMATION
  Report Type: 
  Country: None (occurrence: None)
  Receive Date: 20120118
  Receipt Date: 20120113
  Transmission Date: 20120608
  Serious: Yes (Other)
  Sender: FDA-Public Use
  Company Number: PHEH2011US010509

PATIENT
  Sex: Male

DRUGS (3)
  1. PRILOSEC [Concomitant]
  2. EXJADE [Suspect]
     Indication: IRON OVERLOAD
     Dosage: 1000 MG, DAILY
     Route: 048
     Dates: start: 20111216
  3. ASPIRIN [Suspect]

REACTIONS (3)
  - GASTRIC ULCER [None]
  - GASTROENTERITIS VIRAL [None]
  - ABDOMINAL DISCOMFORT [None]
